FAERS Safety Report 7465340-0 (Version None)
Quarter: 2011Q2

REPORT INFORMATION
  Report Type: 
  Country: None (occurrence: None)
  Receive Date: 20110509
  Receipt Date: 20110505
  Transmission Date: 20111010
  Serious: Yes (Life-Threatening, Hospitalization)
  Sender: FDA-Public Use
  Company Number: BE-BRISTOL-MYERS SQUIBB COMPANY-13701933

PATIENT
  Age: 57 Year
  Sex: Male

DRUGS (2)
  1. FLUOROURACIL [Suspect]
     Indication: HEAD AND NECK CANCER
     Dosage: RECENT INF:23SEP2005
     Route: 042
     Dates: start: 20050831
  2. CISPLATIN [Suspect]
     Indication: HEAD AND NECK CANCER
     Dosage: RECENT INF:23SEP2005
     Route: 042
     Dates: start: 20050831

REACTIONS (2)
  - HAEMOGLOBIN DECREASED [None]
  - HYPOKALAEMIA [None]
